FAERS Safety Report 24728792 (Version 1)
Quarter: 2024Q4

REPORT INFORMATION
  Report Type: Report from Study
  Country: US (occurrence: US)
  Receive Date: 20241212
  Receipt Date: 20241212
  Transmission Date: 20250115
  Serious: Yes (Other)
  Sender: ASCENDIS PHARMA
  Company Number: US-ASCENDIS PHARMA-2024US007019

PATIENT

DRUGS (3)
  1. LONAPEGSOMATROPIN [Suspect]
     Active Substance: LONAPEGSOMATROPIN
     Indication: Growth hormone deficiency
     Dosage: 11 MG, ONCE A WEEK
     Route: 058
     Dates: start: 202208, end: 202408
  2. DUPIXENT [Concomitant]
     Active Substance: DUPILUMAB
     Indication: Eosinophilic oesophagitis
     Dosage: 200 MILLIGRAM, EVERY OTHER WEEK
     Route: 058
  3. RITALIN [Concomitant]
     Active Substance: METHYLPHENIDATE HYDROCHLORIDE
     Indication: Attention deficit hyperactivity disorder
     Dosage: 15 MILLIGRAM, BID
     Route: 048

REACTIONS (2)
  - Papilloedema [Recovered/Resolved]
  - Brain oedema [Unknown]

NARRATIVE: CASE EVENT DATE: 20240701
